FAERS Safety Report 13852650 (Version 5)
Quarter: 2017Q4

REPORT INFORMATION
  Report Type: Spontaneous
  Country: US (occurrence: US)
  Receive Date: 20170810
  Receipt Date: 20171025
  Transmission Date: 20180320
  Serious: Yes (Hospitalization, Other)
  Sender: FDA-Public Use
  Company Number: US-ALEXION PHARMACEUTICALS INC.-A201708970

PATIENT
  Sex: Female

DRUGS (1)
  1. STRENSIQ [Suspect]
     Active Substance: ASFOTASE ALFA
     Indication: HYPOPHOSPHATASIA
     Dosage: UNK
     Route: 058

REACTIONS (7)
  - Patella fracture [Unknown]
  - Blood alkaline phosphatase increased [Unknown]
  - Weight decreased [Unknown]
  - Pain [Unknown]
  - Fall [Unknown]
  - Lower limb fracture [Unknown]
  - Bone density decreased [Unknown]

NARRATIVE: CASE EVENT DATE: 201707
